FAERS Safety Report 9726133 (Version 3)
Quarter: 2014Q1

REPORT INFORMATION
  Report Type: Other
  Country: IT (occurrence: IT)
  Receive Date: 20131203
  Receipt Date: 20140130
  Transmission Date: 20141002
  Serious: Yes (Hospitalization)
  Sender: FDA-Public Use
  Company Number: IT-CUBIST PHARMACEUTICAL, INC.-2013CBST001206

PATIENT
  Sex: 0

DRUGS (2)
  1. CUBICIN [Suspect]
     Indication: SOFT TISSUE INFECTION
     Dosage: 500 MG, QOD
     Route: 042
     Dates: start: 20131023, end: 20131115
  2. PIPERACILLIN/TAZOBACTAM [Concomitant]
     Indication: PRODUCT USED FOR UNKNOWN INDICATION
     Dosage: UNK UNK, UNK
     Route: 065
     Dates: start: 20131023, end: 20131115

REACTIONS (1)
  - Pneumonia [Recovered/Resolved]
